FAERS Safety Report 24921705 (Version 2)
Quarter: 2025Q1

REPORT INFORMATION
  Report Type: Spontaneous
  Country: US (occurrence: US)
  Receive Date: 20250204
  Receipt Date: 20250226
  Transmission Date: 20250409
  Serious: No
  Sender: PFIZER
  Company Number: US-PFIZER INC-202500021464

PATIENT
  Age: 11 Year
  Sex: Male
  Weight: 36.281 kg

DRUGS (3)
  1. GENOTROPIN [Suspect]
     Active Substance: SOMATROPIN
     Indication: Growth hormone deficiency
     Dates: start: 202501
  2. CELECOXIB [Concomitant]
     Active Substance: CELECOXIB
     Indication: Anxiety
     Dosage: 10MG ONCE A DAY ORAL
     Route: 048
  3. AMANTADINE [Concomitant]
     Active Substance: AMANTADINE
     Indication: Attention deficit hyperactivity disorder
     Dosage: TAKES 2 - 100MG CAPSULES ONCE A DAY ORAL
     Route: 048

REACTIONS (3)
  - Device material issue [Unknown]
  - Device use error [Unknown]
  - Device mechanical issue [Unknown]
